FAERS Safety Report 8215536-5 (Version None)
Quarter: 2012Q1

REPORT INFORMATION
  Report Type: 
  Country: None (occurrence: None)
  Receive Date: 20120316
  Receipt Date: 20120302
  Transmission Date: 20120608
  Serious: Yes (Hospitalization)
  Sender: FDA-Public Use
  Company Number: US-ELI_LILLY_AND_COMPANY-US201201007820

PATIENT
  Sex: Female

DRUGS (23)
  1. FORTEO [Suspect]
     Indication: OSTEOPOROSIS
     Dosage: 20 UG, QD
     Dates: start: 20120101, end: 20120115
  2. SIMVASTATIN [Concomitant]
     Dosage: 40 MG, EACH EVENING
  3. LISINOPRIL AND HYDROCHLOROTHIAZIDE [Concomitant]
     Dosage: 45 MG, QD
  4. ASPIRIN [Concomitant]
     Dosage: UNK, QD
  5. COREG [Concomitant]
  6. TRAMADOL HCL [Concomitant]
     Indication: PAIN
     Dosage: 50 MG, PRN
  7. STOOL SOFTENER [Concomitant]
     Dosage: UNK, PRN
  8. CLOBETASOL PROPIONATE [Concomitant]
     Indication: PSORIASIS
     Route: 061
  9. OYSTER SHELL CALCIUM [Concomitant]
  10. ASPIRIN [Concomitant]
     Dosage: 81 MG, UNK
  11. FORTEO [Suspect]
     Dosage: 20 UG, QD
     Dates: start: 20120202
  12. CALCIUM [Concomitant]
     Dosage: 1200 MG, QD
  13. CLONIDINE [Concomitant]
     Dosage: UNK, TID
  14. AMLODIPINE [Concomitant]
     Dosage: 2.5 MG, UNK
  15. COZAAR [Concomitant]
  16. VITAMIN D [Concomitant]
     Dosage: 1200 IU, QD
  17. CLONIDINE [Concomitant]
     Dosage: UNK, EACH EVENING
  18. NORVASC [Concomitant]
     Dosage: 2.5 MG, QD
  19. LASIX [Concomitant]
  20. TYLENOL (CAPLET) [Concomitant]
     Indication: PAIN
     Dosage: UNK, PRN
  21. IBUPROFEN [Concomitant]
     Indication: PAIN
     Dosage: UNK, PRN
  22. MULTI-VITAMINS [Concomitant]
  23. LAXATIVES [Concomitant]

REACTIONS (2)
  - CARDIAC FAILURE CONGESTIVE [None]
  - ATRIAL FIBRILLATION [None]
